FAERS Safety Report 25863861 (Version 1)
Quarter: 2025Q3

REPORT INFORMATION
  Report Type: Spontaneous
  Country: US (occurrence: US)
  Receive Date: 20250930
  Receipt Date: 20250930
  Transmission Date: 20251021
  Serious: No
  Sender: SECURA BIO
  Company Number: US-SECURA BIO, INC.-SECUR-2025-US000014

PATIENT
  Sex: Male
  Weight: 64.853 kg

DRUGS (4)
  1. COPIKTRA [Suspect]
     Active Substance: DUVELISIB
     Indication: Chronic lymphocytic leukaemia
     Dosage: 25 MILLIGRAM, BID
     Route: 048
     Dates: start: 20241229
  2. COPIKTRA [Suspect]
     Active Substance: DUVELISIB
     Indication: B-cell small lymphocytic lymphoma
  3. HUMALOG [Concomitant]
     Active Substance: INSULIN LISPRO
     Indication: Diabetes mellitus
     Dosage: MORNING: 13 UNITS BEFORE BREAKFAST, AFTERNOON IF NEEDED, NIGHT: 2-7UNITS
  4. LANTUS [Concomitant]
     Active Substance: INSULIN GLARGINE
     Indication: Diabetes mellitus

REACTIONS (2)
  - Blood glucose increased [Recovering/Resolving]
  - Rash [Unknown]
